FAERS Safety Report 10021997 (Version 1)
Quarter: 2014Q1

REPORT INFORMATION
  Report Type: Spontaneous
  Country: US (occurrence: US)
  Receive Date: 20140319
  Receipt Date: 20140319
  Transmission Date: 20141002
  Serious: Yes (Other)
  Sender: FDA-Public Use
  Company Number: US-ELI_LILLY_AND_COMPANY-US201403004149

PATIENT
  Sex: Male

DRUGS (13)
  1. HUMALOG LISPRO [Suspect]
     Indication: TYPE 2 DIABETES MELLITUS
     Dosage: 18 U, TID
     Route: 065
  2. HUMALOG LISPRO [Suspect]
     Dosage: 33 U, TID
     Route: 065
  3. HUMALOG LISPRO [Suspect]
     Dosage: 10 U, TID
     Route: 065
     Dates: start: 20140309
  4. INSULIN HUMAN [Suspect]
     Indication: TYPE 2 DIABETES MELLITUS
     Dosage: 66 U, EACH EVENING
     Route: 065
  5. NOVOLOG [Concomitant]
  6. CINNAMON                           /01647501/ [Concomitant]
  7. COENZYME Q10 [Concomitant]
  8. OMEGA 3                            /06852001/ [Concomitant]
  9. ALPHA LIPOIC ACID [Concomitant]
  10. VITAMIN E                          /00110501/ [Concomitant]
  11. VITAMIN D                          /00107901/ [Concomitant]
  12. PROBIOTICS NOS [Concomitant]
  13. LECITHIN [Concomitant]

REACTIONS (3)
  - Blood triglycerides increased [Unknown]
  - Blood glucose increased [Recovering/Resolving]
  - Local swelling [Recovering/Resolving]
